FAERS Safety Report 9961367 (Version 1)
Quarter: 2014Q1

REPORT INFORMATION
  Report Type: Spontaneous
  Country: US (occurrence: None)
  Receive Date: 20140304
  Receipt Date: 20140304
  Transmission Date: 20141002
  Serious: Yes (Hospitalization)
  Sender: FDA-Public Use
  Company Number: None

PATIENT
  Age: 71 Year
  Sex: Male
  Weight: 55.2 kg

DRUGS (1)
  1. FLUOROURACIL [Suspect]
     Indication: NEOPLASM MALIGNANT
     Route: 048
     Dates: start: 20100504, end: 20131107

REACTIONS (4)
  - Diarrhoea [None]
  - Nausea [None]
  - Ileus [None]
  - Abdominal distension [None]
